FAERS Safety Report 16859281 (Version 1)
Quarter: 2019Q3

REPORT INFORMATION
  Report Type: Spontaneous
  Country: IE (occurrence: IE)
  Receive Date: 20190926
  Receipt Date: 20190926
  Transmission Date: 20191005
  Serious: Yes (Other)
  Sender: FDA-Public Use
  Company Number: IE-ASTRAZENECA-2019SF33923

PATIENT
  Age: 27 Year
  Sex: Female

DRUGS (3)
  1. QUETEX [Suspect]
     Active Substance: QUETIAPINE FUMARATE
     Indication: DEPRESSION
     Dosage: 25.0MG UNKNOWN
     Route: 048
  2. PROZAC 20 MG HARD CAPSULES [Concomitant]
     Indication: DEPRESSION
     Dosage: 20.0MG UNKNOWN
     Route: 048
  3. QUETEX [Suspect]
     Active Substance: QUETIAPINE FUMARATE
     Indication: ANXIETY
     Dosage: 25.0MG UNKNOWN
     Route: 048

REACTIONS (6)
  - Body temperature decreased [Recovered/Resolved]
  - Muscle twitching [Recovered/Resolved]
  - Syncope [Recovered/Resolved]
  - Heart rate decreased [Recovered/Resolved]
  - Lethargy [Recovered/Resolved]
  - Heart rate increased [Recovered/Resolved]

NARRATIVE: CASE EVENT DATE: 20190705
